FAERS Safety Report 9996250 (Version 1)
Quarter: 2014Q1

REPORT INFORMATION
  Report Type: Spontaneous
  Country: BD (occurrence: None)
  Receive Date: 20140310
  Receipt Date: 20140310
  Transmission Date: 20141002
  Serious: Yes (Disabling)
  Sender: FDA-Public Use
  Company Number: None

PATIENT
  Age: 2 Week
  Sex: Male
  Weight: 61 kg

DRUGS (1)
  1. FINASTERIDE [Suspect]
     Indication: ALOPECIA
     Dosage: 1/4
     Dates: start: 20140225, end: 20140308

REACTIONS (2)
  - Sleep disorder [None]
  - Feeling abnormal [None]
